FAERS Safety Report 9060581 (Version 2)
Quarter: 2013Q2

REPORT INFORMATION
  Report Type: Spontaneous
  Country: FR (occurrence: FR)
  Receive Date: 20130212
  Receipt Date: 20130416
  Transmission Date: 20140414
  Serious: Yes (Hospitalization, Other)
  Sender: FDA-Public Use
  Company Number: FR-PFIZER INC-2013047998

PATIENT
  Age: 79 Year
  Sex: Female

DRUGS (12)
  1. TAHOR [Suspect]
     Indication: DYSLIPIDAEMIA
     Dosage: 10 MG, 1X/DAY
     Route: 048
     Dates: end: 20121123
  2. ATENOLOL [Suspect]
     Dosage: 100 MG, 2X/DAY
     Route: 048
     Dates: end: 20121123
  3. GLUCOPHAGE [Suspect]
     Indication: TYPE 2 DIABETES MELLITUS
     Dosage: 500 MG, 2X/DAY
     Route: 048
     Dates: end: 20121123
  4. DIAMICRON [Suspect]
     Indication: TYPE 2 DIABETES MELLITUS
     Dosage: 40 MG, 2X/DAY
     Route: 048
     Dates: end: 20121123
  5. DOLIPRANE [Suspect]
     Dosage: UNK
     Route: 048
     Dates: end: 20121123
  6. NISISCO [Suspect]
     Indication: HYPERTENSION
     Dosage: [VALSARTAN 160 MG]/ [HYDROCHLOROTHIAZIDE 12.5 MG], 1X/DAY
     Route: 048
     Dates: end: 20121123
  7. PROFENID [Concomitant]
     Dosage: UNK
     Dates: start: 201207
  8. TRAMADOL [Concomitant]
     Dosage: UNK
     Dates: start: 201207
  9. KETUM [Concomitant]
     Dosage: UNK
     Dates: start: 201207
  10. AERIUS [Concomitant]
     Dosage: UNK
     Dates: start: 201207
  11. PRAVASTATIN [Concomitant]
     Dosage: UNK
     Dates: start: 201207
  12. AMOXICILLIN [Concomitant]
     Dosage: UNK
     Dates: start: 201207

REACTIONS (13)
  - Dermatitis bullous [Recovering/Resolving]
  - Eosinophilia [Recovered/Resolved]
  - Renal failure [Recovered/Resolved]
  - Hypotension [Unknown]
  - Pemphigoid [Unknown]
  - Oedema peripheral [Unknown]
  - Oral mucosal blistering [Unknown]
  - Oral mucosa erosion [Unknown]
  - Urticaria [Unknown]
  - Erythema [Unknown]
  - C-reactive protein increased [Unknown]
  - Thyroid function test abnormal [Unknown]
  - Culture urine positive [Unknown]
